FAERS Safety Report 4693514-0 (Version None)
Quarter: 2005Q2

REPORT INFORMATION
  Report Type: 
  Country: None (occurrence: None)
  Receive Date: 20050617
  Receipt Date: 19990120
  Transmission Date: 20051028
  Serious: Yes (Hospitalization)
  Sender: FDA-Public Use
  Company Number: JP-ROCHE-201310

PATIENT
  Age: 54 Year
  Sex: Male
  Weight: 53.7 kg

DRUGS (13)
  1. MYCOPHENOLATE MOFETIL [Suspect]
     Route: 048
     Dates: start: 19920921, end: 19940422
  2. MYCOPHENOLATE MOFETIL [Suspect]
     Route: 048
     Dates: start: 19940423, end: 19940511
  3. MYCOPHENOLATE MOFETIL [Suspect]
     Route: 048
     Dates: start: 19940512, end: 19941007
  4. MYCOPHENOLATE MOFETIL [Suspect]
     Route: 048
     Dates: start: 19941008, end: 19980328
  5. MYCOPHENOLATE MOFETIL [Suspect]
     Route: 048
     Dates: start: 19980329, end: 19980329
  6. MYCOPHENOLATE MOFETIL [Suspect]
     Route: 048
     Dates: start: 19980404, end: 19991216
  7. SANDIMMUNE [Suspect]
     Route: 048
     Dates: start: 19920921
  8. PREDONINE [Suspect]
     Route: 048
     Dates: start: 19920921
  9. RENIVACE [Concomitant]
     Route: 048
     Dates: start: 19971016
  10. ALOSITOL [Concomitant]
     Route: 048
     Dates: start: 19971110, end: 19971110
  11. URINORM [Concomitant]
     Route: 048
     Dates: start: 19971201, end: 19991216
  12. CEFOTIAM HYDROCHLORIDE [Concomitant]
     Dates: start: 19971110, end: 19971110
  13. SANDONORM [Concomitant]
     Route: 048
     Dates: start: 19991014, end: 19991216

REACTIONS (10)
  - BLOOD AMYLASE INCREASED [None]
  - BLOOD URIC ACID INCREASED [None]
  - COMPLICATIONS OF TRANSPLANTED KIDNEY [None]
  - EPIDIDYMITIS [None]
  - GENITAL PAIN [None]
  - HERPES ZOSTER [None]
  - IMMUNOSUPPRESSION [None]
  - PYELONEPHRITIS [None]
  - PYREXIA [None]
  - SCROTAL OEDEMA [None]
